FAERS Safety Report 7068067-2 (Version None)
Quarter: 2010Q4

REPORT INFORMATION
  Report Type: 
  Country: None (occurrence: None)
  Receive Date: 20101027
  Receipt Date: 20101027
  Transmission Date: 20110411
  Serious: Yes (Other)
  Sender: FDA-Public Use
  Company Number: None

PATIENT
  Age: 59 Year
  Sex: Male
  Weight: 68.0396 kg

DRUGS (2)
  1. OXYCONTIN [Suspect]
     Indication: PAIN
     Dosage: 30 MG 2X DAILY PO
     Route: 048
     Dates: start: 20040401, end: 20101024
  2. OXYCONTIN [Suspect]
     Indication: ROAD TRAFFIC ACCIDENT
     Dosage: 30 MG 2X DAILY PO
     Route: 048
     Dates: start: 20040401, end: 20101024

REACTIONS (6)
  - CONSTIPATION [None]
  - DRUG INEFFECTIVE [None]
  - DYSPEPSIA [None]
  - MEDICATION RESIDUE [None]
  - PRODUCT FORMULATION ISSUE [None]
  - TONGUE DISCOLOURATION [None]
